FAERS Safety Report 16966391 (Version 1)
Quarter: 2019Q4

REPORT INFORMATION
  Report Type: Spontaneous
  Country: CN (occurrence: CN)
  Receive Date: 20191028
  Receipt Date: 20191028
  Transmission Date: 20200122
  Serious: Yes (Other)
  Sender: FDA-Public Use
  Company Number: CN-ASTRAZENECA-2019SF50956

PATIENT
  Age: 28068 Day
  Sex: Male
  Weight: 44 kg

DRUGS (2)
  1. IPRATROPIUM BROMIDE. [Concomitant]
     Active Substance: IPRATROPIUM BROMIDE
     Indication: EMPHYSEMA
     Route: 055
     Dates: start: 20190926, end: 20190926
  2. BUDESONIDE. [Suspect]
     Active Substance: BUDESONIDE
     Indication: EMPHYSEMA
     Route: 055
     Dates: start: 20190926, end: 20190926

REACTIONS (3)
  - Asthma [Recovering/Resolving]
  - Dyspnoea [Recovering/Resolving]
  - Asphyxia [Recovering/Resolving]

NARRATIVE: CASE EVENT DATE: 20191018
